FAERS Safety Report 17899993 (Version 1)
Quarter: 2020Q2

REPORT INFORMATION
  Report Type: Spontaneous
  Country: HR (occurrence: HR)
  Receive Date: 20200616
  Receipt Date: 20200616
  Transmission Date: 20200714
  Serious: Yes (Other)
  Sender: FDA-Public Use
  Company Number: HR-ACCORD-185329

PATIENT
  Age: 56 Year
  Sex: Male

DRUGS (5)
  1. DECORTIN [Concomitant]
     Active Substance: PREDNISONE
     Dosage: STRENGTH: 5 MG, 5 MG P.P.
     Route: 048
     Dates: start: 2005
  2. METHOTREXATE. [Suspect]
     Active Substance: METHOTREXATE
     Indication: RHEUMATOID ARTHRITIS
     Dosage: 12.5 MG
     Route: 048
     Dates: start: 2005
  3. HYRIMOZ [Suspect]
     Active Substance: ADALIMUMAB-ADAZ
     Indication: RHEUMATOID ARTHRITIS
     Dosage: 40 MG EVERY 2 WEEKS
     Route: 058
     Dates: start: 201902, end: 201912
  4. DECORTIN [Concomitant]
     Active Substance: PREDNISONE
     Indication: RHEUMATOID ARTHRITIS
     Dosage: 5 MG P.P. ; AS NECESSARY
     Route: 048
     Dates: start: 2005
  5. METHOTREXATE/METHOTREXATE SODIUM [Concomitant]
     Active Substance: METHOTREXATE\METHOTREXATE SODIUM
     Dosage: 12.5 MG ()
     Route: 048
     Dates: start: 2005

REACTIONS (2)
  - Drug ineffective [Unknown]
  - Rheumatoid arthritis [Not Recovered/Not Resolved]

NARRATIVE: CASE EVENT DATE: 202005
